FAERS Safety Report 15740497 (Version 1)
Quarter: 2018Q4

REPORT INFORMATION
  Report Type: Spontaneous
  Country: JP (occurrence: JP)
  Receive Date: 20181219
  Receipt Date: 20181219
  Transmission Date: 20190205
  Serious: Yes (Other)
  Sender: FDA-Public Use
  Company Number: JP-EISAI MEDICAL RESEARCH-EC-2018-049235

PATIENT
  Age: 60 Year
  Sex: Female

DRUGS (1)
  1. LENVIMA [Suspect]
     Active Substance: LENVATINIB
     Indication: PAPILLARY THYROID CANCER
     Route: 048

REACTIONS (5)
  - Proteinuria [Unknown]
  - Hypertension [Unknown]
  - Superior vena cava syndrome [Unknown]
  - Fistula [Unknown]
  - Epilepsy [Unknown]
